FAERS Safety Report 9146527 (Version 1)
Quarter: 2013Q1

REPORT INFORMATION
  Report Type: Spontaneous
  Country: US (occurrence: US)
  Receive Date: 20130307
  Receipt Date: 20130307
  Transmission Date: 20140127
  Serious: No
  Sender: FDA-Public Use
  Company Number: US-GLAXOSMITHKLINE-A0993503A

PATIENT
  Age: 25 Year
  Sex: Female

DRUGS (2)
  1. ROPINIROLE [Suspect]
     Indication: RESTLESS LEGS SYNDROME
     Dosage: .5MG UNKNOWN
     Route: 048
     Dates: start: 20120830
  2. NO CONCURRENT MEDICATION [Concomitant]

REACTIONS (2)
  - Breast tenderness [Unknown]
  - Vision blurred [Unknown]
